FAERS Safety Report 16465053 (Version 4)
Quarter: 2022Q2

REPORT INFORMATION
  Report Type: Spontaneous
  Country: US (occurrence: None)
  Receive Date: 20190621
  Receipt Date: 20220420
  Transmission Date: 20220720
  Serious: Yes (Hospitalization, Other)
  Sender: FDA-Public Use
  Company Number: 2019SE11050

PATIENT
  Age: 39 Year
  Sex: Female
  Weight: 47.6 kg

DRUGS (40)
  1. NEXIUM [Suspect]
     Active Substance: ESOMEPRAZOLE MAGNESIUM
     Indication: Gastrooesophageal reflux disease
     Route: 048
  2. NEXIUM [Suspect]
     Active Substance: ESOMEPRAZOLE MAGNESIUM
     Indication: Gastrooesophageal reflux disease
     Route: 048
     Dates: start: 2010, end: 2013
  3. NEXIUM 24HR [Suspect]
     Active Substance: ESOMEPRAZOLE MAGNESIUM
     Route: 048
  4. ENALAPRIL [Concomitant]
     Active Substance: ENALAPRIL
     Indication: Hypertension
     Route: 065
  5. ACETAMINOPHEN\HYDROCODONE BITARTRATE [Concomitant]
     Active Substance: ACETAMINOPHEN\HYDROCODONE BITARTRATE
     Route: 065
  6. AMOX /K [Concomitant]
     Route: 065
  7. EXCEDRIN [Concomitant]
     Active Substance: ACETAMINOPHEN\ASPIRIN\CAFFEINE
     Route: 065
  8. PEPTO-BISMOL [Concomitant]
     Active Substance: BISMUTH SUBSALICYLATE
     Route: 065
  9. ZOLPIDEM [Concomitant]
     Active Substance: ZOLPIDEM TARTRATE
  10. AMLODIPINE [Concomitant]
     Active Substance: AMLODIPINE BESYLATE
  11. BUPROPION [Concomitant]
     Active Substance: BUPROPION
  12. DICLOFENAC [Concomitant]
     Active Substance: DICLOFENAC
  13. IRON [Concomitant]
     Active Substance: IRON
  14. NOVOLOG [Concomitant]
     Active Substance: INSULIN ASPART
  15. LEVEMIR [Concomitant]
     Active Substance: INSULIN DETEMIR
  16. MELOXICAM [Concomitant]
     Active Substance: MELOXICAM
  17. PRIMIDONE [Concomitant]
     Active Substance: PRIMIDONE
  18. RISPERIDONE [Concomitant]
     Active Substance: RISPERIDONE
  19. VALPROIC ACID [Concomitant]
     Active Substance: VALPROIC ACID
  20. TROPONIN [Concomitant]
  21. CYMBALTA [Concomitant]
     Active Substance: DULOXETINE HYDROCHLORIDE
  22. WELLBUTRIN [Concomitant]
     Active Substance: BUPROPION HYDROCHLORIDE
  23. LANTUS [Concomitant]
     Active Substance: INSULIN GLARGINE
  24. NICOTINE [Concomitant]
     Active Substance: NICOTINE
  25. FISH OIL [Concomitant]
     Active Substance: FISH OIL
  26. NORVASC [Concomitant]
     Active Substance: AMLODIPINE BESYLATE
  27. HYDROCHLOROTHIAZIDE [Concomitant]
     Active Substance: HYDROCHLOROTHIAZIDE
  28. DEPAKOTE [Concomitant]
     Active Substance: DIVALPROEX SODIUM
  29. DIVALPROEX SODIUM [Concomitant]
     Active Substance: DIVALPROEX SODIUM
  30. HALOPERIDOL [Concomitant]
     Active Substance: HALOPERIDOL
  31. SUMATRIPTAN [Concomitant]
     Active Substance: SUMATRIPTAN
  32. ENOXAPARIN [Concomitant]
     Active Substance: ENOXAPARIN
  33. PHENOL [Concomitant]
     Active Substance: PHENOL
  34. GUAIFENESIN [Concomitant]
     Active Substance: GUAIFENESIN
  35. DIPHENHYDRAMINE [Concomitant]
     Active Substance: DIPHENHYDRAMINE
  36. FLUVIRIN NOS [Concomitant]
     Active Substance: INFLUENZA VIRUS VACCINE
  37. ONDANSETRON [Concomitant]
     Active Substance: ONDANSETRON
  38. DEXTROSE [Concomitant]
     Active Substance: DEXTROSE
  39. ROCEPHIN [Concomitant]
     Active Substance: CEFTRIAXONE SODIUM
  40. TYLENOL [Concomitant]
     Active Substance: ACETAMINOPHEN

REACTIONS (7)
  - Renal failure [Not Recovered/Not Resolved]
  - Chronic kidney disease [Unknown]
  - Acute kidney injury [Unknown]
  - Renal injury [Unknown]
  - Rebound acid hypersecretion [Unknown]
  - Depression [Unknown]
  - Anxiety [Unknown]

NARRATIVE: CASE EVENT DATE: 20150101
